FAERS Safety Report 16866770 (Version 2)
Quarter: 2019Q4

REPORT INFORMATION
  Report Type: Spontaneous
  Country: BR (occurrence: BR)
  Receive Date: 20190930
  Receipt Date: 20191111
  Transmission Date: 20200122
  Serious: Yes (Life-Threatening)
  Sender: FDA-Public Use
  Company Number: PHHY2019BR224414

PATIENT
  Age: 92 Year
  Sex: Female

DRUGS (1)
  1. DIOVAN AMLO FIX [Suspect]
     Active Substance: AMLODIPINE\VALSARTAN
     Indication: PRODUCT USED FOR UNKNOWN INDICATION
     Dosage: UNK (CUTS THE TABLET)
     Route: 065

REACTIONS (4)
  - Asphyxia [Unknown]
  - Product use complaint [Unknown]
  - Tissue anoxia [Unknown]
  - Wrong technique in product usage process [Not Recovered/Not Resolved]

NARRATIVE: CASE EVENT DATE: 20190921
